FAERS Safety Report 19906252 (Version 1)
Quarter: 2021Q3

REPORT INFORMATION
  Report Type: Spontaneous
  Country: US (occurrence: US)
  Receive Date: 20210930
  Receipt Date: 20210930
  Transmission Date: 20211014
  Serious: Yes (Hospitalization)
  Sender: FDA-Public Use
  Company Number: US-BEH-2021136537

PATIENT
  Sex: Female

DRUGS (2)
  1. PRIVIGEN [Suspect]
     Active Substance: HUMAN IMMUNOGLOBULIN G
     Indication: MYOPATHY
     Dosage: 60 GRAM, DAY  3
     Route: 042
     Dates: start: 201908
  2. PRIVIGEN [Suspect]
     Active Substance: HUMAN IMMUNOGLOBULIN G
     Indication: CONNECTIVE TISSUE DISORDER
     Dosage: 65 GRAM, DAILY FOR DAY  1 AND 2
     Route: 042
     Dates: start: 201908

REACTIONS (4)
  - No adverse event [Unknown]
  - Off label use [Unknown]
  - Withdrawal syndrome [Unknown]
  - Insurance issue [Unknown]
